FAERS Safety Report 24750791 (Version 1)
Quarter: 2024Q4

REPORT INFORMATION
  Report Type: Report from Study
  Country: US (occurrence: US)
  Receive Date: 20241218
  Receipt Date: 20241218
  Transmission Date: 20250115
  Serious: Yes (Hospitalization)
  Sender: ABBVIE
  Company Number: US-ABBVIE-6045385

PATIENT
  Age: 60 Year
  Sex: Female

DRUGS (3)
  1. RINVOQ [Suspect]
     Active Substance: UPADACITINIB
     Indication: Rheumatoid arthritis
     Dosage: LAST ADMIN DATE:2024, STRENGTH: 15 MG
     Route: 048
     Dates: start: 202403
  2. RINVOQ [Suspect]
     Active Substance: UPADACITINIB
     Indication: Rheumatoid arthritis
     Route: 048
     Dates: start: 20241130
  3. RINVOQ [Suspect]
     Active Substance: UPADACITINIB
     Indication: Rheumatoid arthritis
     Dosage: STRENGTH: 15 MG, TOOK HALF TABLET
     Route: 048
     Dates: start: 20241118, end: 20241128

REACTIONS (7)
  - Cyst [Unknown]
  - Arthralgia [Recovered/Resolved]
  - Gait disturbance [Unknown]
  - Incorrect dose administered [Unknown]
  - Pain [Unknown]
  - Appendix disorder [Unknown]
  - Arthralgia [Unknown]

NARRATIVE: CASE EVENT DATE: 20240101
